FAERS Safety Report 9203812 (Version 1)
Quarter: 2013Q1

REPORT INFORMATION
  Report Type: Spontaneous
  Country: US (occurrence: None)
  Receive Date: 20130329
  Receipt Date: 20130329
  Transmission Date: 20140127
  Serious: Yes (Other)
  Sender: FDA-Public Use
  Company Number: None

PATIENT
  Age: 46 Year
  Sex: Female
  Weight: 48.08 kg

DRUGS (2)
  1. BUPROPRION XL 150MG TAB MFG: GLOBAL [Suspect]
     Indication: DEPRESSION
     Dosage: BUPROPRION DAILY ORAL ?BUPROPRION 2013
     Route: 048
     Dates: start: 2013
  2. SERTRALINE [Suspect]
     Dosage: SERTRANE 2013?SERTRANE DAILY ORAL
     Route: 048
     Dates: start: 2011

REACTIONS (2)
  - Palpitations [None]
  - Blood pressure increased [None]
